FAERS Safety Report 25328011 (Version 5)
Quarter: 2025Q4

REPORT INFORMATION
  Report Type: Spontaneous
  Country: US (occurrence: US)
  Receive Date: 20250518
  Receipt Date: 20251106
  Transmission Date: 20260117
  Serious: No
  Sender: SANOFI AVENTIS
  Company Number: US-SA-2025SA139927

PATIENT
  Age: 1 Year
  Sex: Female

DRUGS (1)
  1. DUPIXENT [Suspect]
     Active Substance: DUPILUMAB
     Indication: Eczema
     Dosage: 200 MG, Q4W
     Route: 058
     Dates: start: 202410

REACTIONS (8)
  - Scratch [Unknown]
  - Erythema [Unknown]
  - Pruritus [Unknown]
  - Therapeutic response shortened [Unknown]
  - Eczema [Not Recovered/Not Resolved]
  - Injection site bruising [Unknown]
  - Inappropriate schedule of product administration [Unknown]
  - Device use issue [Unknown]

NARRATIVE: CASE EVENT DATE: 20241001
